FAERS Safety Report 5715883-2 (Version None)
Quarter: 2008Q2

REPORT INFORMATION
  Report Type: 
  Country: None (occurrence: None)
  Receive Date: 20080424
  Receipt Date: 20080415
  Transmission Date: 20081010
  Serious: Yes (Death, Life-Threatening)
  Sender: FDA-Public Use
  Company Number: JP-AVENTIS-200811217JP

PATIENT
  Age: 83 Year
  Sex: Female
  Weight: 55.5 kg

DRUGS (31)
  1. LASIX [Suspect]
     Dosage: DOSE: 480 MG TO 120 MG
     Route: 041
     Dates: start: 20070917, end: 20070928
  2. AMIODARONE HCL [Suspect]
     Route: 042
     Dates: start: 20070921, end: 20070927
  3. AMIODARONE HCL [Suspect]
     Route: 048
     Dates: start: 20070927
  4. ALLOPURINOL [Suspect]
  5. ALDACTONE [Suspect]
  6. LANSOPRAZOLE [Suspect]
     Route: 048
     Dates: start: 20070922
  7. WARFARIN SODIUM [Suspect]
     Route: 048
     Dates: start: 20070929
  8. ASPIRIN [Suspect]
     Route: 048
     Dates: start: 20070920
  9. BLOPRESS [Suspect]
     Route: 048
     Dates: start: 20070918, end: 20070930
  10. ARTIST [Suspect]
     Route: 048
     Dates: start: 20070918
  11. ITOROL [Suspect]
     Route: 048
     Dates: start: 20070923
  12. LENDORMIN [Suspect]
  13. SIGMART [Suspect]
     Route: 042
     Dates: start: 20070917, end: 20070927
  14. SIGMART [Suspect]
     Route: 048
     Dates: start: 20070923
  15. MEVALOTIN [Suspect]
  16. PREDOPA [Concomitant]
     Dosage: DOSE: 216 TO 108 MG
     Route: 042
     Dates: start: 20070917, end: 20070927
  17. NITOLOL [Concomitant]
     Route: 042
     Dates: start: 20070917, end: 20070927
  18. HANP [Concomitant]
     Dosage: DOSE: 96 TO 12 ML
     Route: 042
     Dates: start: 20070918, end: 20071013
  19. LIDOCAINE [Concomitant]
     Dosage: DOSE: 72 TO 48 ML
     Route: 042
     Dates: start: 20070921, end: 20070926
  20. SOLITAX-H [Concomitant]
     Route: 042
     Dates: start: 20070917, end: 20070928
  21. REPLAS [Concomitant]
     Dosage: DOSE: 1500 TO 500 ML
     Route: 042
     Dates: start: 20070917, end: 20070930
  22. AMICALIQ [Concomitant]
     Route: 042
     Dates: start: 20070922, end: 20071010
  23. INTRAFAT [Concomitant]
     Route: 042
     Dates: start: 20070921, end: 20070921
  24. OMEPRAL [Concomitant]
     Route: 042
     Dates: start: 20070917, end: 20070921
  25. BROACT [Concomitant]
     Route: 042
     Dates: start: 20070920, end: 20070928
  26. KL [Concomitant]
     Route: 042
     Dates: start: 20070921, end: 20070922
  27. HALOPERIDOL [Concomitant]
     Route: 042
     Dates: start: 20070922, end: 20070922
  28. PANALDINE [Concomitant]
     Route: 048
     Dates: start: 20070920
  29. DEPAS [Concomitant]
     Route: 048
     Dates: start: 20070923, end: 20071022
  30. MYSLEE [Concomitant]
     Route: 048
     Dates: start: 20070920, end: 20070923
  31. VASOLAN                            /00014302/ [Concomitant]
     Route: 042
     Dates: start: 20070921, end: 20070921

REACTIONS (2)
  - AGRANULOCYTOSIS [None]
  - CARDIAC FAILURE [None]
